FAERS Safety Report 9849807 (Version 2)
Quarter: 2014Q3

REPORT INFORMATION
  Report Type: Report from Study
  Country: RU (occurrence: RU)
  Receive Date: 20140128
  Receipt Date: 20140820
  Transmission Date: 20150326
  Serious: Yes (Hospitalization)
  Sender: FDA-Public Use
  Company Number: RU-ALEXION PHARMACEUTICALS INC.-A201400193

PATIENT
  Age: 1 Year
  Sex: Male
  Weight: 5 kg

DRUGS (7)
  1. ARANESP [Concomitant]
     Active Substance: DARBEPOETIN ALFA
  2. SOLIRIS [Suspect]
     Active Substance: ECULIZUMAB
     Indication: HAEMOLYTIC URAEMIC SYNDROME
     Dosage: 300 MG, QIW
     Route: 042
     Dates: start: 20130923, end: 20140203
  3. L-CARNITINE                        /00878601/ [Concomitant]
     Indication: ENCEPHALOPATHY
     Route: 048
  4. VARFARINA [Concomitant]
  5. SOLIRIS [Suspect]
     Active Substance: ECULIZUMAB
     Dosage: UNK
  6. MENCEVAX ACWY [Concomitant]
     Dosage: UNK
     Dates: start: 20130918
  7. MIMPARA [Concomitant]
     Active Substance: CINACALCET HYDROCHLORIDE

REACTIONS (1)
  - Peritonitis [Recovered/Resolved]

NARRATIVE: CASE EVENT DATE: 20140113
